FAERS Safety Report 15485372 (Version 2)
Quarter: 2018Q4

REPORT INFORMATION
  Report Type: Spontaneous
  Country: US (occurrence: US)
  Receive Date: 20181010
  Receipt Date: 20181019
  Transmission Date: 20190205
  Serious: No
  Sender: FDA-Public Use
  Company Number: US-ACTELION-A-NJ2018-179802

PATIENT
  Age: 78 Year
  Sex: Female
  Weight: 53.61 kg

DRUGS (5)
  1. UPTRAVI [Suspect]
     Active Substance: SELEXIPAG
     Indication: PULMONARY ARTERIAL HYPERTENSION
     Dosage: 400 MCG, BID
     Route: 048
  2. TRACLEER [Concomitant]
     Active Substance: BOSENTAN
     Indication: PULMONARY ARTERIAL HYPERTENSION
  3. WARFARIN [Concomitant]
     Active Substance: WARFARIN
  4. UPTRAVI [Suspect]
     Active Substance: SELEXIPAG
     Dosage: 200 MCG, BID
     Route: 048
  5. DILTIAZEM. [Concomitant]
     Active Substance: DILTIAZEM

REACTIONS (6)
  - Neck pain [Recovered/Resolved]
  - Headache [Unknown]
  - Nausea [Unknown]
  - Pain in extremity [Unknown]
  - Muscle spasms [Unknown]
  - Pain [Unknown]

NARRATIVE: CASE EVENT DATE: 20180928
